FAERS Safety Report 13975754 (Version 3)
Quarter: 2017Q4

REPORT INFORMATION
  Report Type: Report from Study
  Country: US (occurrence: US)
  Receive Date: 20170915
  Receipt Date: 20171110
  Transmission Date: 20180321
  Serious: Yes (Other)
  Sender: FDA-Public Use
  Company Number: US-ALEXION PHARMACEUTICALS INC.-A201709964

PATIENT
  Age: 13 Year
  Sex: Female
  Weight: 42.9 kg

DRUGS (1)
  1. SOLIRIS [Suspect]
     Active Substance: ECULIZUMAB
     Indication: HAEMOLYTIC URAEMIC SYNDROME
     Dosage: UNK
     Route: 042
     Dates: start: 20170819

REACTIONS (11)
  - Renal atrophy [Unknown]
  - Visual impairment [Unknown]
  - Fluid overload [Unknown]
  - Retinal detachment [Recovering/Resolving]
  - Papilloedema [Recovering/Resolving]
  - Faeces hard [Unknown]
  - Left ventricular hypertrophy [Unknown]
  - Blood parathyroid hormone increased [Unknown]
  - Blood lactate dehydrogenase increased [Recovering/Resolving]
  - Cardiovascular disorder [Unknown]
  - Nausea [Unknown]

NARRATIVE: CASE EVENT DATE: 20170904
